FAERS Safety Report 4862507-2 (Version None)
Quarter: 2005Q4

REPORT INFORMATION
  Report Type: 
  Country: None (occurrence: None)
  Receive Date: 20051221
  Receipt Date: 20051010
  Transmission Date: 20060501
  Serious: Yes (Other)
  Sender: FDA-Public Use
  Company Number: 200517169US

PATIENT
  Sex: Female
  Weight: 73.2 kg

DRUGS (6)
  1. KETEK [Suspect]
     Indication: SINUSITIS
     Route: 048
     Dates: start: 20050901, end: 20050901
  2. NEXIUM [Concomitant]
     Route: 048
  3. PLAVIX [Concomitant]
     Route: 048
  4. IMDUR [Concomitant]
     Route: 048
  5. LOPRESSOR [Concomitant]
     Route: 048
  6. HYDROCHLOROTHIAZIDE [Concomitant]
     Route: 048

REACTIONS (5)
  - ACTIVITIES OF DAILY LIVING IMPAIRED [None]
  - BLINDNESS [None]
  - DIPLOPIA [None]
  - VISION BLURRED [None]
  - VISUAL DISTURBANCE [None]
